FAERS Safety Report 9555029 (Version 2)
Quarter: 2013Q4

REPORT INFORMATION
  Report Type: Spontaneous
  Country: US (occurrence: US)
  Receive Date: 20130926
  Receipt Date: 20131025
  Transmission Date: 20140711
  Serious: No
  Sender: FDA-Public Use
  Company Number: US-009507513-1309USA012315

PATIENT
  Age: 68 Year
  Sex: Female
  Weight: 68.27 kg

DRUGS (1)
  1. JANUMET XR [Suspect]
     Indication: TYPE 2 DIABETES MELLITUS
     Dosage: ONE TIME QD
     Route: 048
     Dates: start: 20120924, end: 20130930

REACTIONS (2)
  - Dysgeusia [Recovered/Resolved]
  - Inappropriate schedule of drug administration [Unknown]
